FAERS Safety Report 4369685-2 (Version None)
Quarter: 2004Q2

REPORT INFORMATION
  Report Type: 
  Country: None (occurrence: None)
  Receive Date: 20040603
  Receipt Date: 20040506
  Transmission Date: 20050107
  Serious: Yes (Death)
  Sender: FDA-Public Use
  Company Number: BR-ROCHE-366980

PATIENT
  Sex: Female

DRUGS (4)
  1. CELLCEPT [Suspect]
     Route: 048
     Dates: start: 20010115, end: 20010515
  2. CYCLOSPORINE [Concomitant]
     Route: 048
     Dates: start: 20010615, end: 20010615
  3. TACROLIMUS [Concomitant]
     Route: 048
     Dates: start: 20010615, end: 20010615
  4. AZATHIOPRINE [Concomitant]
     Route: 048
     Dates: start: 20010615, end: 20010615

REACTIONS (9)
  - ALOPECIA [None]
  - CONVULSION [None]
  - DIALYSIS [None]
  - DIARRHOEA [None]
  - RENAL IMPAIRMENT [None]
  - RESPIRATORY FAILURE [None]
  - TRANSPLANT REJECTION [None]
  - VOMITING [None]
  - WEIGHT DECREASED [None]
